FAERS Safety Report 5422796-2 (Version None)
Quarter: 2007Q3

REPORT INFORMATION
  Report Type: 
  Country: None (occurrence: None)
  Receive Date: 20070730
  Receipt Date: 20060714
  Transmission Date: 20080115
  Serious: Yes (Hospitalization)
  Sender: FDA-Public Use
  Company Number: 200612516BWH

PATIENT
  Age: 57 Year
  Sex: Male

DRUGS (19)
  1. AVELOX [Suspect]
     Indication: BRONCHITIS
     Dosage: ORAL
     Route: 048
  2. PAXIL [Concomitant]
  3. MONOPRIL [Concomitant]
  4. TYLENOL REGULAR [Concomitant]
  5. TRAZODONE HCL [Concomitant]
  6. WELLBUTRIN XL [Concomitant]
  7. COMBIVENT (IPRATROPIUM BROMIDE, SALBUTAMOL) [Concomitant]
  8. MAXZIDE [Concomitant]
  9. FLONASE [Concomitant]
  10. MIRALAX [Concomitant]
  11. HYOSCYAMINE [Concomitant]
  12. ASPIRIN [Concomitant]
  13. CALCIUM [Concomitant]
  14. MULTI-VITAMIN [Concomitant]
  15. PROTONIX [Concomitant]
  16. SINGULAIR [Concomitant]
  17. TYLENOL OM (DIPHENHYDRAMINE, PARACETAMOL) [Concomitant]
  18. CELEBREX [Concomitant]
  19. ADVAIR DISKUS 100/50 [Concomitant]

REACTIONS (13)
  - ABDOMINAL PAIN [None]
  - ASTHENIA [None]
  - BRADYPHRENIA [None]
  - CONSTIPATION [None]
  - DYSPNOEA [None]
  - DYSSTASIA [None]
  - FATIGUE [None]
  - HYPERHIDROSIS [None]
  - HYPOTENSION [None]
  - MENTAL DISORDER [None]
  - NAUSEA [None]
  - NERVOUSNESS [None]
  - STOMACH DISCOMFORT [None]
